FAERS Safety Report 6816271-8 (Version None)
Quarter: 2010Q3

REPORT INFORMATION
  Report Type: 
  Country: None (occurrence: None)
  Receive Date: 20100705
  Receipt Date: 20100628
  Transmission Date: 20110219
  Serious: Yes (Life-Threatening, Hospitalization)
  Sender: FDA-Public Use
  Company Number: CN-BAYER-201020973GPV

PATIENT
  Age: 53 Year
  Sex: Male
  Weight: 65 kg

DRUGS (15)
  1. SORAFENIB [Suspect]
     Indication: HEPATIC NEOPLASM MALIGNANT
     Dosage: TOTAL DAILY DOSE: 800 MG
     Route: 048
     Dates: start: 20100203, end: 20100306
  2. SORAFENIB [Suspect]
     Dosage: TOTAL DAILY DOSE: 800 MG
     Route: 048
     Dates: start: 20100307, end: 20100330
  3. DOXORUBICIN HCL [Suspect]
     Indication: HEPATIC NEOPLASM MALIGNANT
  4. GLYCYRRHIZIN [Concomitant]
     Indication: HEPATIC FUNCTION ABNORMAL
     Dosage: 8 VIALS
     Route: 042
     Dates: start: 20100607, end: 20100611
  5. GLYCYRRHIZIN [Concomitant]
     Dosage: 8 VIALS
     Route: 041
     Dates: end: 20100201
  6. TIOPRONIN [Concomitant]
     Indication: HEPATIC FUNCTION ABNORMAL
     Route: 041
     Dates: end: 20100201
  7. PANTOPRAZOLE SODIUM [Concomitant]
     Indication: GASTRIC PH DECREASED
     Route: 042
     Dates: start: 20100210, end: 20100212
  8. PANTOPRAZOLE SODIUM [Concomitant]
     Route: 041
     Dates: start: 20100208, end: 20100208
  9. FLOXACILLIN SODIUM [Concomitant]
     Indication: INFECTION PROPHYLAXIS
     Route: 042
     Dates: start: 20100212, end: 20100610
  10. FLOXACILLIN SODIUM [Concomitant]
     Route: 041
     Dates: start: 20100208, end: 20100210
  11. TROPISETRON HYDROCHLORIDE [Concomitant]
     Indication: PROPHYLAXIS OF NAUSEA AND VOMITING
     Dosage: AND SODIUM CHLORIDE
     Route: 041
     Dates: start: 20100208, end: 20100208
  12. GLUTATHIONE [Concomitant]
     Indication: HEPATIC FUNCTION ABNORMAL
     Route: 041
     Dates: start: 20100331, end: 20100412
  13. RESERPINE [Concomitant]
     Indication: HYPOTENSION
     Route: 048
     Dates: start: 20100308, end: 20100331
  14. POLYENE PHOSPHATIDYLCHOLINE [Concomitant]
     Indication: INFECTION PROPHYLAXIS
     Route: 042
     Dates: start: 20100607, end: 20100611
  15. URSODIOL [Concomitant]
     Indication: JAUNDICE
     Route: 048
     Dates: start: 20100408, end: 20100418

REACTIONS (3)
  - ALANINE AMINOTRANSFERASE INCREASED [None]
  - ASPARTATE AMINOTRANSFERASE INCREASED [None]
  - BLOOD BILIRUBIN INCREASED [None]
